FAERS Safety Report 8647610 (Version 2)
Quarter: 2014Q1

REPORT INFORMATION
  Report Type: Spontaneous
  Country: US (occurrence: None)
  Receive Date: 20120323
  Receipt Date: 20130305
  Transmission Date: 20141002
  Serious: Yes (Other)
  Sender: FDA-Public Use
  Company Number: 163-21880-11111304

PATIENT
  Age: 75 Year
  Sex: Male

DRUGS (3)
  1. REVLIMID [Suspect]
     Indication: MYELODYSPLASTIC SYNDROME
     Dosage: 10 MG, DAILY X 21 DAYS ON, 7 OFF, PO
     Route: 048
     Dates: start: 20111006, end: 20111028
  2. ARANESP (DARBEPOETIN ALFA) [Concomitant]
  3. NEUPOGEN (FILGRASTIM) [Concomitant]

REACTIONS (2)
  - Skin exfoliation [None]
  - Rash [None]
